FAERS Safety Report 14345661 (Version 1)
Quarter: 2017Q4

REPORT INFORMATION
  Report Type: Spontaneous
  Country: US (occurrence: US)
  Receive Date: 20171230
  Receipt Date: 20171230
  Transmission Date: 20180321
  Serious: No
  Sender: FDA-Public Use
  Company Number: None

PATIENT
  Age: 65 Year
  Sex: Female

DRUGS (1)
  1. IBRANCE [Suspect]
     Active Substance: PALBOCICLIB
     Indication: PRODUCT USED FOR UNKNOWN INDICATION
     Dosage: 125MG DAILY FOR 21 DAYS/28 DAYS CYCLE PO
     Route: 048
     Dates: start: 20170406

REACTIONS (1)
  - Alopecia [None]

NARRATIVE: CASE EVENT DATE: 20171001
